FAERS Safety Report 20515908 (Version 2)
Quarter: 2022Q1

REPORT INFORMATION
  Report Type: Spontaneous
  Country: US (occurrence: US)
  Receive Date: 20220225
  Receipt Date: 20220329
  Transmission Date: 20220423
  Serious: No
  Sender: FDA-Public Use
  Company Number: US-UNITED THERAPEUTICS-UNT-2022-001162

PATIENT
  Sex: Male
  Weight: 111.11 kg

DRUGS (3)
  1. TYVASO [Suspect]
     Active Substance: TREPROSTINIL
     Indication: Pulmonary arterial hypertension
     Dosage: UNK
     Dates: start: 20210916
  2. TYVASO [Suspect]
     Active Substance: TREPROSTINIL
     Dosage: 18-72 ?G, QID
     Dates: end: 202202
  3. TYVASO [Suspect]
     Active Substance: TREPROSTINIL
     Dosage: UNK

REACTIONS (15)
  - Haemoglobin abnormal [Unknown]
  - Dyspnoea [Not Recovered/Not Resolved]
  - Oxygen consumption increased [Unknown]
  - Fatigue [Unknown]
  - Peripheral swelling [Unknown]
  - Weight increased [Unknown]
  - Somnolence [Unknown]
  - Pain in extremity [Unknown]
  - Anaemia [Unknown]
  - Fall [Recovered/Resolved]
  - Dizziness [Unknown]
  - Throat irritation [Unknown]
  - Vomiting [Unknown]
  - Cough [Unknown]
  - Therapy non-responder [Unknown]
